FAERS Safety Report 9302925 (Version 1)
Quarter: 2013Q2

REPORT INFORMATION
  Report Type: Spontaneous
  Country: DO (occurrence: DO)
  Receive Date: 20130522
  Receipt Date: 20130522
  Transmission Date: 20140414
  Serious: Yes (Other)
  Sender: FDA-Public Use
  Company Number: PHHY2013DO050610

PATIENT
  Age: 70 Year
  Sex: Female

DRUGS (1)
  1. ACLASTA [Suspect]
     Indication: OSTEOPOROSIS
     Dosage: 5 MG ANNUALLY
     Route: 042
     Dates: start: 2012

REACTIONS (5)
  - Osteonecrosis of jaw [Unknown]
  - Bone atrophy [Unknown]
  - Bone deformity [Unknown]
  - Mastication disorder [Unknown]
  - Bone density decreased [Unknown]
